FAERS Safety Report 9460556 (Version 2)
Quarter: 2013Q3

REPORT INFORMATION
  Report Type: Spontaneous
  Country: CM (occurrence: CM)
  Receive Date: 20130815
  Receipt Date: 20130918
  Transmission Date: 20140515
  Serious: Yes (Other)
  Sender: FDA-Public Use
  Company Number: CM-009507513-1308CMR004203

PATIENT
  Age: 8 Year
  Sex: Male

DRUGS (4)
  1. MECTIZAN [Suspect]
     Dosage: 2 DF, ONCE
     Route: 048
     Dates: start: 20130714, end: 20130714
  2. MECTIZAN [Suspect]
     Dosage: UNK
     Route: 048
     Dates: start: 2012, end: 2012
  3. ALBENDAZOLE [Suspect]
     Dosage: 1 DF, ONCE
     Dates: start: 20130714, end: 20130714
  4. ALBENDAZOLE [Suspect]
     Dosage: UNK
     Dates: start: 2012, end: 2012

REACTIONS (2)
  - Stevens-Johnson syndrome [Recovered/Resolved]
  - Dermatitis bullous [Recovered/Resolved]
